FAERS Safety Report 5318015-8 (Version None)
Quarter: 2007Q1

REPORT INFORMATION
  Report Type: 
  Country: None (occurrence: None)
  Receive Date: 20070131
  Receipt Date: 20051219
  Transmission Date: 20070707
  Serious: Yes (Other)
  Sender: FDA-Public Use
  Company Number: 2005BH002633

PATIENT
  Sex: Female

DRUGS (1)
  1. DIANEAL PD-2 W/ DEXTROSE 1.5% [Suspect]
     Indication: DRUG USE FOR UNKNOWN INDICATION
     Dosage: IP
     Route: 033

REACTIONS (1)
  - PERITONITIS [None]
